FAERS Safety Report 11832637 (Version 1)
Quarter: 2015Q4

REPORT INFORMATION
  Report Type: Spontaneous
  Country: IT (occurrence: IT)
  Receive Date: 20151214
  Receipt Date: 20151214
  Transmission Date: 20160305
  Serious: Yes (Other)
  Sender: FDA-Public Use
  Company Number: PHHY2015IT162735

PATIENT
  Age: 39 Year
  Sex: Male

DRUGS (3)
  1. CARBIDOPA,ENTACAPONE,LEVODOPA [Suspect]
     Active Substance: CARBIDOPA\ENTACAPONE\LEVODOPA
     Indication: PARKINSON^S DISEASE
     Dosage: 50/12.5/200 MG 5 TIMES PER DAY
     Route: 065
  2. ROTIGOTINE [Suspect]
     Active Substance: ROTIGOTINE
     Indication: PARKINSON^S DISEASE
     Dosage: 6 MG, QD
     Route: 065
  3. RASAGILINE [Concomitant]
     Active Substance: RASAGILINE
     Indication: PARKINSON^S DISEASE
     Dosage: 1 MG, QD
     Route: 065

REACTIONS (3)
  - Jealous delusion [Recovered/Resolved]
  - Aggression [Recovered/Resolved]
  - Hallucination, visual [Recovered/Resolved]
